FAERS Safety Report 7277769-4 (Version None)
Quarter: 2011Q1

REPORT INFORMATION
  Report Type: 
  Country: None (occurrence: None)
  Receive Date: 20110207
  Receipt Date: 20101104
  Transmission Date: 20110831
  Serious: No
  Sender: FDA-Public Use
  Company Number: A0857696A

PATIENT
  Age: 51 Year
  Sex: Female

DRUGS (6)
  1. NIASPAN [Concomitant]
  2. ALLEGRA D 24 HOUR [Concomitant]
  3. ALLEGRA [Concomitant]
  4. OLUX E FOAM (EMULSION AEROSOL FOAM) [Suspect]
     Indication: PSORIASIS
     Dosage: 1APP PER DAY
     Route: 061
     Dates: start: 20090601, end: 20100401
  5. SYNTHROID [Concomitant]
  6. ASPIRIN [Concomitant]

REACTIONS (3)
  - PRODUCT QUALITY ISSUE [None]
  - DRUG INEFFECTIVE [None]
  - EXPIRED DRUG ADMINISTERED [None]
